FAERS Safety Report 7546454-3 (Version None)
Quarter: 2011Q2

REPORT INFORMATION
  Report Type: 
  Country: None (occurrence: None)
  Receive Date: 20110614
  Receipt Date: 20110613
  Transmission Date: 20111010
  Serious: Yes (Hospitalization)
  Sender: FDA-Public Use
  Company Number: US-JNJFOC-2010018092

PATIENT
  Sex: Male
  Weight: 82.19 kg

DRUGS (8)
  1. CAFFEINE [Suspect]
     Indication: PRODUCT USED FOR UNKNOWN INDICATION
  2. TYLENOL PM [Suspect]
     Indication: PRODUCT USED FOR UNKNOWN INDICATION
     Route: 048
  3. SUDAFED 12 HOUR [Suspect]
     Indication: NASOPHARYNGITIS
     Dosage: DAILY DOSE TEXT: AS DIRECTED
     Route: 048
     Dates: start: 20090301
  4. ZYRTEC [Suspect]
     Indication: NASOPHARYNGITIS
     Route: 048
  5. NAPROXEN (ALEVE) [Suspect]
     Indication: NASOPHARYNGITIS
     Route: 048
  6. ANTIHISTAMINE [Suspect]
     Indication: NASOPHARYNGITIS
  7. GUAIFENESIN [Suspect]
     Indication: NASOPHARYNGITIS
     Route: 048
  8. ZYRTEC [Suspect]
     Route: 048

REACTIONS (13)
  - ARRHYTHMIA [None]
  - DYSPNOEA EXERTIONAL [None]
  - SOMNOLENCE [None]
  - HEADACHE [None]
  - SENSORY DISTURBANCE [None]
  - CARDIOMYOPATHY [None]
  - FEELING ABNORMAL [None]
  - COUGH [None]
  - ATRIAL FIBRILLATION [None]
  - CHEST PAIN [None]
  - OROPHARYNGEAL PAIN [None]
  - EAR PAIN [None]
  - SYNCOPE [None]
